FAERS Safety Report 5406222-5 (Version None)
Quarter: 2007Q3

REPORT INFORMATION
  Report Type: 
  Country: None (occurrence: None)
  Receive Date: 20070806
  Receipt Date: 20070725
  Transmission Date: 20080115
  Serious: Yes (Hospitalization)
  Sender: FDA-Public Use
  Company Number: JP-MERCK-0408USA02192

PATIENT
  Age: 65 Year
  Sex: Male

DRUGS (6)
  1. SINGULAIR [Suspect]
     Indication: ASTHMA
     Route: 048
     Dates: start: 20030101, end: 20040810
  2. MUCOSOLVAN [Concomitant]
     Route: 048
     Dates: start: 20030101
  3. MUCODYNE [Concomitant]
     Route: 048
     Dates: start: 20030101
  4. THEO-DUR [Concomitant]
     Route: 048
     Dates: start: 20030101
  5. HOKUNALIN [Concomitant]
     Route: 061
     Dates: start: 20030101
  6. PULMICORT [Concomitant]
     Dates: start: 20030101

REACTIONS (2)
  - EOSINOPHILIC CYSTITIS [None]
  - PROSTATITIS [None]
